FAERS Safety Report 5013745-X (Version None)
Quarter: 2006Q2

REPORT INFORMATION
  Report Type: 
  Country: None (occurrence: None)
  Receive Date: 20060530
  Receipt Date: 20060403
  Transmission Date: 20061013
  Serious: Yes (Death)
  Sender: FDA-Public Use
  Company Number: JP-AVENTIS-200611077JP

PATIENT
  Age: 80 Year
  Sex: Male
  Weight: 40 kg

DRUGS (9)
  1. ALLEGRA [Suspect]
     Indication: RHINITIS ALLERGIC
     Route: 048
     Dates: start: 20060401, end: 20060402
  2. ALLEGRA [Suspect]
     Indication: EPISTAXIS
     Route: 048
     Dates: start: 20060401, end: 20060402
  3. ALLOPURINOL [Concomitant]
     Indication: HYPERURICAEMIA
     Dosage: DOSE: 1 TABLET
     Route: 048
     Dates: end: 20060403
  4. ALOSENN [Concomitant]
     Indication: DYSCHEZIA
     Route: 048
     Dates: end: 20060403
  5. GASTER [Concomitant]
     Indication: GASTRIC ULCER
     Dosage: DOSE: 1 TBLS
     Route: 048
     Dates: end: 20060403
  6. GASMOTIN [Concomitant]
     Indication: GASTRITIS
     Dosage: DOSE: 1 TBLS
     Route: 048
     Dates: end: 20060403
  7. SELBEX [Concomitant]
     Indication: GASTRIC ULCER
     Dosage: DOSE: 1 TABLET
     Route: 048
     Dates: end: 20060403
  8. URSO [Concomitant]
     Indication: HEPATIC FUNCTION ABNORMAL
     Dosage: DOSE: 1 TABLET
     Route: 048
     Dates: start: 20050615, end: 20060403
  9. SERMION [Concomitant]
     Indication: CEREBROVASCULAR DISORDER
     Dosage: DOSE: 1 TABLET
     Route: 048
     Dates: start: 20060218, end: 20060403

REACTIONS (3)
  - ANGIONEUROTIC OEDEMA [None]
  - CARDIAC FAILURE ACUTE [None]
  - HYPERKALAEMIA [None]
